FAERS Safety Report 8822079 (Version 3)
Quarter: 2012Q4

REPORT INFORMATION
  Report Type: 
  Country: JP (occurrence: JP)
  Receive Date: 20121003
  Receipt Date: 20121126
  Transmission Date: 20130627
  Serious: Yes (Death)
  Sender: FDA-Public Use
  Company Number: JP-AMGEN-JPNSP2012061372

PATIENT
  Age: 29 Year
  Sex: Female
  Weight: 54 kg

DRUGS (14)
  1. GRAN [Suspect]
     Indication: FEBRILE NEUTROPENIA
     Dosage: 225 mug, qd
     Route: 041
     Dates: start: 20120831, end: 20120901
  2. GRAN [Suspect]
     Indication: CHEMOTHERAPY
  3. BRIPLATIN [Suspect]
     Indication: BONE SARCOMA
     Dosage: 195 mg, UNK
     Route: 041
     Dates: start: 20120717
  4. BRIPLATIN [Suspect]
     Dosage: 187 mg, UNK
     Route: 041
     Dates: start: 20120823
  5. DOXORUBICIN HYDROCHLORIDE [Suspect]
     Indication: BONE SARCOMA
     Dosage: 48 mg, UNK
     Route: 041
     Dates: start: 20120717
  6. DOXORUBICIN HYDROCHLORIDE [Suspect]
     Dosage: 46 mg, UNK
     Route: 041
     Dates: start: 20120823, end: 20120824
  7. METHOTREXATE [Concomitant]
     Indication: BONE SARCOMA
     Dosage: 10 mg/m2, UNK
     Route: 065
     Dates: start: 20120807
  8. METHOTREXATE [Concomitant]
     Dosage: 10 mg/m2, UNK
     Route: 065
     Dates: start: 20120814
  9. TAKEPRON [Concomitant]
     Dosage: UNK
     Route: 048
  10. TAKEPRON [Concomitant]
     Dosage: Uncertainty
     Route: 048
  11. ISOBIDE [Concomitant]
     Dosage: UNK
     Route: 048
  12. ISOBIDE [Concomitant]
     Dosage: Uncertainty
     Route: 048
  13. ZOSYN [Concomitant]
     Indication: SEPSIS
     Dosage: 4.5 g, tid
     Route: 041
     Dates: start: 20120827
  14. CIPROXAN                           /00697202/ [Concomitant]
     Indication: SEPSIS
     Dosage: 300 mg, bid
     Route: 041
     Dates: start: 20120827

REACTIONS (2)
  - Shock [Fatal]
  - Sepsis [Fatal]
